FAERS Safety Report 6411744-4 (Version None)
Quarter: 2009Q4

REPORT INFORMATION
  Report Type: 
  Country: None (occurrence: None)
  Receive Date: 20091023
  Receipt Date: 20091014
  Transmission Date: 20100525
  Serious: Yes (Life-Threatening)
  Sender: FDA-Public Use
  Company Number: GB-ROCHE-663159

PATIENT
  Age: 51 Year
  Sex: Female

DRUGS (1)
  1. XELODA [Suspect]
     Indication: COLORECTAL CANCER
     Dosage: DRUG WITHDRAWN
     Route: 065
     Dates: end: 20090807

REACTIONS (2)
  - GASTROINTESTINAL STOMA COMPLICATION [None]
  - SYNCOPE [None]
